FAERS Safety Report 9706743 (Version 1)
Quarter: 2013Q4

REPORT INFORMATION
  Report Type: Spontaneous
  Country: PL (occurrence: PL)
  Receive Date: 20131125
  Receipt Date: 20131125
  Transmission Date: 20140711
  Serious: Yes (Hospitalization, Other)
  Sender: FDA-Public Use
  Company Number: PL-AMGEN-POLSP2013082231

PATIENT
  Age: 52 Year
  Sex: Female
  Weight: 66 kg

DRUGS (8)
  1. NEULASTA [Suspect]
     Indication: PROPHYLAXIS
     Dosage: 6 MG, Q3WK
     Route: 058
     Dates: start: 20131004
  2. MABTHERA [Concomitant]
     Indication: LYMPHOMA
     Dosage: 650 MG, BID
     Route: 042
     Dates: start: 20131031, end: 20131031
  3. CYCLOPHOSPHAMIDE [Concomitant]
     Indication: LYMPHOMA
     Dosage: 1300 UNK, BID
     Route: 042
     Dates: start: 20131031, end: 20131031
  4. DOXORUBICIN [Concomitant]
     Indication: LYMPHOMA
     Dosage: UNK
  5. VINCRISTINE [Concomitant]
     Indication: LYMPHOMA
     Dosage: 2 MG, BID
     Route: 042
     Dates: start: 20131031, end: 20131031
  6. ENCORTON                           /00044701/ [Concomitant]
     Indication: LYMPHOMA
     Dosage: 100 MG, BID
     Route: 048
     Dates: start: 20131031, end: 20131104
  7. DEXAVEN [Concomitant]
     Indication: PREMEDICATION
     Dosage: 8 MG, BID
     Route: 042
     Dates: start: 20131031, end: 20131031
  8. PARACETAMOL [Concomitant]
     Indication: PREMEDICATION
     Dosage: 500 MG, BID
     Route: 048
     Dates: start: 20131031, end: 20131031

REACTIONS (2)
  - Shock [Recovered/Resolved]
  - Loss of consciousness [Unknown]
